FAERS Safety Report 24856143 (Version 2)
Quarter: 2025Q1

REPORT INFORMATION
  Report Type: Spontaneous
  Country: US (occurrence: US)
  Receive Date: 20250117
  Receipt Date: 20250120
  Transmission Date: 20250408
  Serious: Yes (Other)
  Sender: PFIZER
  Company Number: US-PFIZER INC-PV202300183882

PATIENT
  Age: 69 Year
  Sex: Female
  Weight: 61.23 kg

DRUGS (2)
  1. TIKOSYN [Suspect]
     Active Substance: DOFETILIDE
     Indication: Cardiac disorder
  2. TIKOSYN [Suspect]
     Active Substance: DOFETILIDE
     Dosage: 500, TWO TIMES A DAY
     Dates: start: 202307

REACTIONS (4)
  - Neoplasm malignant [Unknown]
  - Accidental overdose [Unknown]
  - Blood pressure abnormal [Unknown]
  - Nervousness [Unknown]

NARRATIVE: CASE EVENT DATE: 20230101
